FAERS Safety Report 7787416-0 (Version None)
Quarter: 2011Q3

REPORT INFORMATION
  Report Type: 
  Country: None (occurrence: None)
  Receive Date: 20110929
  Receipt Date: 20110714
  Transmission Date: 20111222
  Serious: No
  Sender: FDA-Public Use
  Company Number: US-BAYER-2011-062639

PATIENT

DRUGS (1)
  1. ALEVE (CAPLET) [Suspect]
     Dosage: 2 TABLETS
     Route: 048
     Dates: start: 20110714

REACTIONS (1)
  - DRUG INEFFECTIVE [None]
